FAERS Safety Report 7762031-3 (Version None)
Quarter: 2011Q3

REPORT INFORMATION
  Report Type: 
  Country: None (occurrence: None)
  Receive Date: 20110920
  Receipt Date: 20110912
  Transmission Date: 20111222
  Serious: No
  Sender: FDA-Public Use
  Company Number: US-B.I. PHARMACEUTICALS,INC./RIDGEFIELD-2011-BP-22164BP

PATIENT
  Sex: Female

DRUGS (1)
  1. MIRAPEX [Suspect]
     Indication: RESTLESS LEGS SYNDROME
     Dates: start: 19970101

REACTIONS (10)
  - HYPERSEXUALITY [None]
  - NAUSEA [None]
  - DEPRESSION [None]
  - PATHOLOGICAL GAMBLING [None]
  - ANXIETY [None]
  - BINGE EATING [None]
  - WITHDRAWAL SYNDROME [None]
  - HYPERHIDROSIS [None]
  - OBSESSIVE-COMPULSIVE DISORDER [None]
  - CRYING [None]
